FAERS Safety Report 5070930-9 (Version None)
Quarter: 2006Q3

REPORT INFORMATION
  Report Type: 
  Country: None (occurrence: None)
  Receive Date: 20060714
  Receipt Date: 20060424
  Transmission Date: 20061208
  Serious: No
  Sender: FDA-Public Use
  Company Number: 2006SP001803

PATIENT
  Age: 63 Year
  Sex: Female
  Weight: 121.564 kg

DRUGS (7)
  1. LUNESTA [Suspect]
     Indication: INSOMNIA
     Dosage: 3 MG;HS;ORAL
     Route: 048
     Dates: start: 20060401, end: 20060401
  2. VICODIN [Concomitant]
  3. ZETIA [Concomitant]
  4. VALSARTAN [Concomitant]
  5. GLUCOPHAGE [Concomitant]
  6. GLIPIZIDE [Concomitant]
  7. PIOGLITAZONE HCL [Concomitant]

REACTIONS (2)
  - DYSGEUSIA [None]
  - INITIAL INSOMNIA [None]
